FAERS Safety Report 10635830 (Version 10)
Quarter: 2015Q3

REPORT INFORMATION
  Report Type: Spontaneous
  Country: US (occurrence: US)
  Receive Date: 20141205
  Receipt Date: 20150828
  Transmission Date: 20151125
  Serious: Yes (Hospitalization, Other)
  Sender: FDA-Public Use
  Company Number: US-GLAXOSMITHKLINE-US2014GSK031094

PATIENT
  Sex: Female

DRUGS (9)
  1. FLOLAN [Suspect]
     Active Substance: EPOPROSTENOL SODIUM
     Dosage: UNK, CO
     Dates: start: 20141124
  2. FLOLAN [Suspect]
     Active Substance: EPOPROSTENOL SODIUM
     Indication: PULMONARY ARTERIAL HYPERTENSION
     Dosage: 19 NG/KG/MIN
     Route: 042
     Dates: start: 20140925
  3. FLOLAN [Suspect]
     Active Substance: EPOPROSTENOL SODIUM
     Dosage: 19 NG/KG/MIN (CONCENTRATION 30,000 NG/ML, PUMP RATE 74 ML/DAY, VIAL STRENGTH 1.5 MG), CO
     Route: 042
  4. FLOLAN [Suspect]
     Active Substance: EPOPROSTENOL SODIUM
     Dosage: 20 NG/KG/MIN CONTINUOUSLY
  5. WARFARIN [Concomitant]
     Active Substance: WARFARIN
  6. FLOLAN [Suspect]
     Active Substance: EPOPROSTENOL SODIUM
     Dosage: 8 NG/KG/MIN CONTINUOUS; CONCENTRATION: 15,000 NG/ML; PUMP RATE: 62 ML/DAY; VIAL STRENGTH: 1.5 MG
     Dates: start: 20141124
  7. OPSUMIT [Concomitant]
     Active Substance: MACITENTAN
  8. REVATIO [Concomitant]
     Active Substance: SILDENAFIL CITRATE
  9. FLOLAN [Suspect]
     Active Substance: EPOPROSTENOL SODIUM
     Dosage: UNK, CO

REACTIONS (9)
  - Internal haemorrhage [Unknown]
  - Vasculitis [Unknown]
  - Pain in jaw [Unknown]
  - Pneumonia [Unknown]
  - Hyperaesthesia [Unknown]
  - Fatigue [Not Recovered/Not Resolved]
  - Influenza [Unknown]
  - Headache [Unknown]
  - Nausea [Unknown]
